FAERS Safety Report 8206026-4 (Version None)
Quarter: 2012Q1

REPORT INFORMATION
  Report Type: 
  Country: None (occurrence: None)
  Receive Date: 20120309
  Receipt Date: 20120301
  Transmission Date: 20120608
  Serious: Yes (Hospitalization)
  Sender: FDA-Public Use
  Company Number: 2012SP006677

PATIENT
  Age: 48 Year
  Sex: Female
  Weight: 42.55 kg

DRUGS (5)
  1. SOLDEM 3A [Concomitant]
  2. VITAMEDIN (PYRIDOXINE HYDROCHLORIDE) [Concomitant]
  3. BFLUID (MIXED AMINO ACID/CARBOHYDRATE/ELECTROLYTE/VITAMIN COMBINED DRU [Concomitant]
  4. REMERON [Suspect]
     Indication: DEPRESSED MOOD
     Dosage: 15 MG;QD;PO
     Route: 048
     Dates: start: 20120124, end: 20120126
  5. ALBUMIN (HUMAN) [Concomitant]

REACTIONS (5)
  - MALAISE [None]
  - RESTLESSNESS [None]
  - DELIRIUM TREMENS [None]
  - AGGRESSION [None]
  - REFUSAL OF TREATMENT BY PATIENT [None]
